FAERS Safety Report 4358625-8 (Version None)
Quarter: 2004Q2

REPORT INFORMATION
  Report Type: 
  Country: None (occurrence: None)
  Receive Date: 20040514
  Receipt Date: 20040514
  Transmission Date: 20050107
  Serious: Yes (Death, Hospitalization)
  Sender: FDA-Public Use
  Company Number: None

PATIENT
  Age: 46 Year
  Sex: Female
  Weight: 63.5036 kg

DRUGS (16)
  1. BUSULFAN [Suspect]
     Indication: CHEMOTHERAPY
     Dosage: 96 MG QD ORAL
     Route: 048
     Dates: start: 20040323, end: 20040326
  2. BUSULFAN [Suspect]
     Indication: HODGKIN'S DISEASE
     Dosage: 96 MG QD ORAL
     Route: 048
     Dates: start: 20040323, end: 20040326
  3. BUSULFAN [Suspect]
     Indication: STEM CELL TRANSPLANT
     Dosage: 96 MG QD ORAL
     Route: 048
     Dates: start: 20040323, end: 20040326
  4. CYTOXAN [Suspect]
     Dosage: 5100 MG QD IV
     Route: 042
     Dates: start: 20040327, end: 20040329
  5. ACTIGAL [Concomitant]
  6. NEUPOGEN [Concomitant]
  7. PANTOPRAZOLE [Concomitant]
  8. SERTRALINE [Concomitant]
  9. CLOTRIMAZOLE [Concomitant]
  10. REGLAN [Concomitant]
  11. METHYLPREDNISOLONE [Concomitant]
  12. METOPROLOL [Concomitant]
  13. CIPROFLOXACIN [Concomitant]
  14. VORACONAZOLE [Concomitant]
  15. BACTRIM DS [Concomitant]
  16. LASIX [Concomitant]

REACTIONS (6)
  - ACUTE RESPIRATORY DISTRESS SYNDROME [None]
  - BACTERAEMIA [None]
  - BLOOD BILIRUBIN ABNORMAL [None]
  - PULMONARY ALVEOLAR HAEMORRHAGE [None]
  - RENAL FAILURE [None]
  - STEM CELL TRANSPLANT [None]
